FAERS Safety Report 5132230-8 (Version None)
Quarter: 2006Q4

REPORT INFORMATION
  Report Type: 
  Country: None (occurrence: None)
  Receive Date: 20061017
  Receipt Date: 20060928
  Transmission Date: 20070319
  Serious: Yes (Life-Threatening, Hospitalization, Other)
  Sender: FDA-Public Use
  Company Number: US200609007464

PATIENT
  Age: 28 Year
  Sex: Female

DRUGS (2)
  1. PROZAC [Suspect]
     Indication: DEPRESSION
     Dosage: ORAL
     Route: 048
     Dates: start: 20030101
  2. PAXIL [Concomitant]

REACTIONS (3)
  - AGGRESSION [None]
  - SUICIDAL IDEATION [None]
  - SUICIDE ATTEMPT [None]
